FAERS Safety Report 24559300 (Version 2)
Quarter: 2024Q4

REPORT INFORMATION
  Report Type: Report from Study
  Country: CA (occurrence: CA)
  Receive Date: 20241029
  Receipt Date: 20241113
  Transmission Date: 20250115
  Serious: Yes (Other)
  Sender: TAKEDA
  Company Number: CA-TAKEDA-2024TUS106861

PATIENT
  Age: 76 Year
  Sex: Male

DRUGS (7)
  1. VEDOLIZUMAB [Suspect]
     Active Substance: VEDOLIZUMAB
     Indication: Colitis ulcerative
     Dosage: 300 MILLIGRAM
  2. VEDOLIZUMAB [Suspect]
     Active Substance: VEDOLIZUMAB
     Dosage: 300 MILLIGRAM, Q4WEEKS
     Dates: start: 20241107
  3. MESALAMINE [Concomitant]
     Active Substance: MESALAMINE
     Dosage: 1.2 GRAM
  4. BISOPROLOL [Concomitant]
     Active Substance: BISOPROLOL\BISOPROLOL FUMARATE
     Indication: Arrhythmia
     Dosage: UNK
  5. PERINDOPRIL [Concomitant]
     Active Substance: PERINDOPRIL
     Indication: Arrhythmia
     Dosage: UNK
  6. EDOXABAN TOSYLATE [Concomitant]
     Active Substance: EDOXABAN TOSYLATE
     Indication: Arrhythmia
     Dosage: UNK
  7. IRON [Concomitant]
     Active Substance: IRON
     Indication: Anaemia
     Dosage: UNK

REACTIONS (8)
  - Rectal haemorrhage [Unknown]
  - Defaecation urgency [Unknown]
  - Frequent bowel movements [Unknown]
  - Diarrhoea [Unknown]
  - Mucous stools [Unknown]
  - Malaise [Unknown]
  - Off label use [Unknown]
  - Flatulence [Unknown]

NARRATIVE: CASE EVENT DATE: 20241107
